FAERS Safety Report 5698123-2 (Version None)
Quarter: 2008Q2

REPORT INFORMATION
  Report Type: 
  Country: None (occurrence: None)
  Receive Date: 20080408
  Receipt Date: 20080327
  Transmission Date: 20081010
  Serious: Yes (Hospitalization)
  Sender: FDA-Public Use
  Company Number: KR-PFIZER INC-2008023335

PATIENT
  Sex: Male
  Weight: 64 kg

DRUGS (7)
  1. SU-011,248 [Suspect]
     Indication: RENAL CELL CARCINOMA
     Route: 048
  2. LEVOTHYROXINE SODIUM [Concomitant]
     Route: 048
  3. PROCTOSEDYL OINTMENT ^ROCHE^ [Concomitant]
     Dates: start: 20071116, end: 20080306
  4. NERISONA [Concomitant]
  5. ITOPRIDE [Concomitant]
     Route: 048
  6. CIMETIDINE [Concomitant]
     Route: 048
  7. SUCRALFATE [Concomitant]
     Route: 048

REACTIONS (1)
  - PERIANAL ABSCESS [None]
